FAERS Safety Report 9529627 (Version 1)
Quarter: 2013Q2

REPORT INFORMATION
  Report Type: Spontaneous
  Country: US (occurrence: None)
  Receive Date: 20130402
  Receipt Date: 20130402
  Transmission Date: 20140414
  Serious: Yes (Hospitalization)
  Sender: FDA-Public Use
  Company Number: RB-49466-2013

PATIENT
  Sex: Female

DRUGS (2)
  1. SUBOXONE 8 MG [Suspect]
     Indication: DRUG DEPENDENCE
     Dosage: 16 MG, SUBOXONE FILM SUBLINGUAL
     Dates: end: 20130121
  2. ALCOHOL [Suspect]
     Indication: SUBSTANCE USE
     Dosage: DOSING DETAILS UNKNOWN ORAL
     Route: 048
     Dates: start: 20130121, end: 20130121

REACTIONS (4)
  - Road traffic accident [None]
  - Soft tissue injury [None]
  - Pain [None]
  - Drug abuse [None]
